FAERS Safety Report 4428900-7 (Version None)
Quarter: 2004Q3

REPORT INFORMATION
  Report Type: 
  Country: None (occurrence: None)
  Receive Date: 20040818
  Receipt Date: 20040810
  Transmission Date: 20050211
  Serious: Yes (Hospitalization)
  Sender: FDA-Public Use
  Company Number: US-BRISTOL-MYERS SQUIBB COMPANY-12666285

PATIENT
  Age: 71 Year
  Sex: Male
  Weight: 71 kg

DRUGS (10)
  1. COUMADIN [Suspect]
     Indication: CARDIAC OPERATION
     Dosage: DOSE VARYING FROM 7.5 MG DAILY TO 15 MG DAILY
     Route: 048
     Dates: start: 19920101
  2. GEMFIBROZIL [Concomitant]
  3. METOPROLOL [Concomitant]
  4. TERAZOSIN HCL [Concomitant]
  5. MULTI-VITAMIN [Concomitant]
  6. FOLIC ACID [Concomitant]
  7. CALTRATE [Concomitant]
  8. SAW PALMETTO [Concomitant]
  9. SIMVASTATIN [Concomitant]
  10. CELEBREX [Concomitant]

REACTIONS (2)
  - CAROTID ENDARTERECTOMY [None]
  - INTERNATIONAL NORMALISED RATIO ABNORMAL [None]
